FAERS Safety Report 8553821-8 (Version None)
Quarter: 2012Q3

REPORT INFORMATION
  Report Type: 
  Country: None (occurrence: None)
  Receive Date: 20120731
  Receipt Date: 20120724
  Transmission Date: 20120928
  Serious: Yes (Other)
  Sender: FDA-Public Use
  Company Number: GB-MSD-1207GBR009720

PATIENT

DRUGS (5)
  1. OMEGA-3 MARINE TRIGLYCERIDES [Interacting]
  2. FEXOFENADINE HYDROCHLORIDE [Concomitant]
  3. ZOCOR [Suspect]
     Indication: DIABETES MELLITUS
     Dosage: 20 MG, BID
     Route: 048
     Dates: start: 20120528, end: 20120610
  4. GLUCOPHAGE [Concomitant]
  5. DIAMICRON MR [Concomitant]

REACTIONS (10)
  - EYE PRURITUS [None]
  - NAUSEA [None]
  - VISION BLURRED [None]
  - DRUG INTERACTION [None]
  - DRY EYE [None]
  - HYPERGLYCAEMIA [None]
  - DIARRHOEA [None]
  - HEADACHE [None]
  - EYE SWELLING [None]
  - DIZZINESS [None]
